FAERS Safety Report 16648709 (Version 1)
Quarter: 2019Q3

REPORT INFORMATION
  Report Type: Report from Study
  Country: US (occurrence: US)
  Receive Date: 20190730
  Receipt Date: 20190730
  Transmission Date: 20191004
  Serious: No
  Sender: FDA-Public Use
  Company Number: US-ALEXION PHARMACEUTICALS INC.-A201911006

PATIENT
  Sex: Male

DRUGS (1)
  1. STRENSIQ [Suspect]
     Active Substance: ASFOTASE ALFA
     Indication: HYPOPHOSPHATASIA
     Dosage: 2 MG/KG, UNK
     Route: 058

REACTIONS (6)
  - Drug ineffective [Unknown]
  - Bone pain [Not Recovered/Not Resolved]
  - Contusion [Recovering/Resolving]
  - Blood alkaline phosphatase increased [Unknown]
  - Fatigue [Unknown]
  - Injection site reaction [Recovering/Resolving]
